FAERS Safety Report 4690179-9 (Version None)
Quarter: 2005Q2

REPORT INFORMATION
  Report Type: 
  Country: None (occurrence: None)
  Receive Date: 20050613
  Receipt Date: 20050601
  Transmission Date: 20051028
  Serious: Yes (Death, Life-Threatening, Disabling)
  Sender: FDA-Public Use
  Company Number: 2005JP001133

PATIENT
  Age: 71 Year
  Sex: Female

DRUGS (5)
  1. FUNGUARD(MICAFUNGIN) INJECTION [Suspect]
     Indication: PNEUMONIA ASPERGILLUS
     Dosage: 300.00 MG, UID/QD, IV DRIP
     Route: 041
     Dates: start: 20050518, end: 20050531
  2. FUNGIZONE [Suspect]
     Dosage: 5. 00 MG IV NOS
     Route: 042
     Dates: start: 20050519, end: 20050520
  3. UNASYN [Suspect]
     Dosage: 6.00 G IV NOS
     Route: 042
     Dates: start: 20050522, end: 20050531
  4. DENOSINE ^TANABE^ (GANCICLOVIR) [Concomitant]
  5. PREDNISOLONE [Concomitant]

REACTIONS (8)
  - CEREBRAL INFARCTION [None]
  - CHOLELITHIASIS [None]
  - CONVULSION [None]
  - EMBOLISM [None]
  - ENCEPHALITIS [None]
  - FUNGAL INFECTION [None]
  - PANCREATITIS ACUTE [None]
  - RESPIRATORY ARREST [None]
